FAERS Safety Report 12441833 (Version 1)
Quarter: 2016Q2

REPORT INFORMATION
  Report Type: Spontaneous
  Country: US (occurrence: US)
  Receive Date: 20160607
  Receipt Date: 20160607
  Transmission Date: 20160815
  Serious: No
  Sender: FDA-Public Use
  Company Number: US-BIOGEN-2016BI00231883

PATIENT
  Sex: Female

DRUGS (2)
  1. AVONEX [Suspect]
     Active Substance: INTERFERON BETA-1A
     Indication: MULTIPLE SCLEROSIS
     Route: 030
     Dates: start: 20051027, end: 20150307
  2. PLEGRIDY [Suspect]
     Active Substance: PEGINTERFERON BETA-1A
     Indication: MULTIPLE SCLEROSIS
     Route: 058
     Dates: start: 20150310, end: 20160407

REACTIONS (10)
  - Influenza [Recovered/Resolved]
  - Feeling of body temperature change [Unknown]
  - Depression [Recovered/Resolved]
  - Mental impairment [Recovered/Resolved]
  - Eye disorder [Recovered/Resolved]
  - Feeling drunk [Recovered/Resolved]
  - Cognitive disorder [Recovered/Resolved]
  - Mobility decreased [Recovered/Resolved]
  - Pain [Unknown]
  - Dysstasia [Recovered/Resolved]
